FAERS Safety Report 8393500-3 (Version None)
Quarter: 2012Q2

REPORT INFORMATION
  Report Type: 
  Country: None (occurrence: None)
  Receive Date: 20120529
  Receipt Date: 20120523
  Transmission Date: 20120825
  Serious: Yes (Hospitalization)
  Sender: FDA-Public Use
  Company Number: DE-ACTELION-A-US2011-52881

PATIENT

DRUGS (5)
  1. SILDENAFIL [Concomitant]
  2. BOSENTAN [Concomitant]
     Indication: PULMONARY ARTERIAL HYPERTENSION
     Dosage: UNK
     Route: 048
     Dates: start: 20110601
  3. VENTAVIS [Suspect]
     Indication: PULMONARY ARTERIAL HYPERTENSION
     Dosage: 5 UG, Q4HR
     Route: 055
     Dates: start: 20080728
  4. SITAXSENTAN [Concomitant]
  5. OXYGEN [Concomitant]

REACTIONS (4)
  - DIZZINESS [None]
  - BRONCHITIS [None]
  - DYSPNOEA [None]
  - PULMONARY ARTERIAL HYPERTENSION [None]
